FAERS Safety Report 21663725 (Version 1)
Quarter: 2022Q4

REPORT INFORMATION
  Report Type: Spontaneous
  Country: GB (occurrence: None)
  Receive Date: 20221130
  Receipt Date: 20221130
  Transmission Date: 20230112
  Serious: Yes (Other)
  Sender: FDA-Public Use
  Company Number: 2022A385619

PATIENT
  Age: 67 Year
  Sex: Female

DRUGS (7)
  1. ROSUVASTATIN [Suspect]
     Active Substance: ROSUVASTATIN
     Indication: Blood cholesterol increased
     Dosage: ANYTIME,EVERY DAY
     Route: 065
  2. ATORVASTATIN [Suspect]
     Active Substance: ATORVASTATIN
     Indication: Blood cholesterol increased
     Dosage: 10, AT NIGHT
     Route: 065
  3. SIMVASTATIN [Suspect]
     Active Substance: SIMVASTATIN
     Indication: Blood cholesterol increased
     Dosage: 10, AT NIGHT
     Route: 065
  4. AMLODIPINE [Concomitant]
     Active Substance: AMLODIPINE BESYLATE
     Indication: Hypertension
  5. ASPIRIN [Concomitant]
     Active Substance: ASPIRIN
  6. LANSOPRAZOLE [Concomitant]
     Active Substance: LANSOPRAZOLE
     Indication: Gastritis
  7. PENICILLIN V [Concomitant]
     Active Substance: PENICILLIN V
     Indication: Asplenia
     Dates: start: 19970909

REACTIONS (6)
  - Cardiac flutter [Unknown]
  - Palpitations [Unknown]
  - Myalgia [Recovered/Resolved with Sequelae]
  - Arthralgia [Unknown]
  - Abdominal discomfort [Unknown]
  - Abdominal pain [Unknown]
